FAERS Safety Report 11318685 (Version 1)
Quarter: 2015Q3

REPORT INFORMATION
  Report Type: Spontaneous
  Country: FR (occurrence: FR)
  Receive Date: 20150729
  Receipt Date: 20150729
  Transmission Date: 20151125
  Serious: Yes (Other)
  Sender: FDA-Public Use
  Company Number: FR-009507513-1507FRA012026

PATIENT
  Age: 0 Day
  Sex: Male

DRUGS (4)
  1. CELESTENE [Suspect]
     Active Substance: BETAMETHASONE
     Dosage: UNK
     Route: 064
     Dates: start: 20150705, end: 20150706
  2. LOXEN [Suspect]
     Active Substance: NICARDIPINE HYDROCHLORIDE
     Dosage: 2 ML, QH
     Route: 064
     Dates: start: 20150706, end: 20150706
  3. LOXEN [Suspect]
     Active Substance: NICARDIPINE HYDROCHLORIDE
     Dosage: 3CC/HOUR DURING 3 HOURS AND THEN 5 CC/HOUR DURING 6 HOURS
     Route: 042
     Dates: start: 20150707, end: 20150707
  4. TRACTOCILE [Suspect]
     Active Substance: ATOSIBAN
     Dosage: UNK
     Route: 064
     Dates: start: 201507

REACTIONS (1)
  - Premature baby [Unknown]

NARRATIVE: CASE EVENT DATE: 20150710
